FAERS Safety Report 9270889 (Version 3)
Quarter: 2013Q2

REPORT INFORMATION
  Report Type: Spontaneous
  Country: JP (occurrence: JP)
  Receive Date: 20130503
  Receipt Date: 20130531
  Transmission Date: 20140414
  Serious: Yes (Other)
  Sender: FDA-Public Use
  Company Number: JP-ASTRAZENECA-2013SE30346

PATIENT
  Age: 92 Year
  Sex: Female

DRUGS (8)
  1. SEROQUEL [Suspect]
     Route: 048
  2. SEROQUEL [Suspect]
     Route: 048
     Dates: start: 201303, end: 2013
  3. SEROQUEL [Suspect]
     Route: 048
     Dates: start: 2013
  4. SEROQUEL [Suspect]
     Route: 048
     Dates: end: 20130428
  5. UNSPECIFIED [Concomitant]
  6. OMEPRAL [Concomitant]
  7. MENESIT [Concomitant]
  8. PURSENNID [Concomitant]

REACTIONS (2)
  - Loss of consciousness [Recovered/Resolved]
  - Oculogyric crisis [Recovered/Resolved]
